FAERS Safety Report 7919578-6 (Version None)
Quarter: 2011Q4

REPORT INFORMATION
  Report Type: 
  Country: None (occurrence: None)
  Receive Date: 20111115
  Receipt Date: 20111107
  Transmission Date: 20120403
  Serious: Yes (Other)
  Sender: FDA-Public Use
  Company Number: WAES 1111FRA00029

PATIENT
  Age: 55 Year
  Sex: Male

DRUGS (6)
  1. ASAFLOW [Concomitant]
  2. ISENTRESS [Suspect]
     Indication: HIV INFECTION
     Dosage: 400 MG/BID, PO
     Route: 048
     Dates: start: 20110505
  3. CIALIS [Concomitant]
  4. LIPITOR [Concomitant]
  5. NORVIR [Suspect]
     Indication: HIV INFECTION
     Dosage: 100 MG/DAILY, PO
     Route: 048
     Dates: start: 20110505
  6. PREZISTA [Suspect]
     Indication: HIV INFECTION
     Dosage: 200 MG/BID, PO
     Route: 048
     Dates: start: 20110505

REACTIONS (1)
  - BLOOD TRIGLYCERIDES INCREASED [None]
